FAERS Safety Report 4677279-4 (Version None)
Quarter: 2005Q2

REPORT INFORMATION
  Report Type: 
  Country: None (occurrence: None)
  Receive Date: 20050527
  Receipt Date: 20050527
  Transmission Date: 20051028
  Serious: Yes (Other)
  Sender: FDA-Public Use
  Company Number: None

PATIENT
  Age: 28 Year
  Sex: Male
  Weight: 63.5036 kg

DRUGS (2)
  1. TYLENOL W/ CODEINE NO. 3 [Suspect]
     Indication: PAIN
     Dosage: 1 TAB
  2. PROPOPHYL [Suspect]
     Indication: SEDATION
     Dosage: 20 MG

REACTIONS (2)
  - POST PROCEDURAL COMPLICATION [None]
  - RASH [None]
